FAERS Safety Report 18764981 (Version 2)
Quarter: 2021Q1

REPORT INFORMATION
  Report Type: Spontaneous
  Country: US (occurrence: US)
  Receive Date: 20210120
  Receipt Date: 20210316
  Transmission Date: 20210419
  Serious: No
  Sender: FDA-Public Use
  Company Number: US-PFIZER INC-2021035591

PATIENT
  Age: 51 Year
  Sex: Female

DRUGS (1)
  1. IBRANCE [Suspect]
     Active Substance: PALBOCICLIB
     Indication: BREAST CANCER FEMALE
     Dosage: 100 MG, CYCLIC (FOR 21 DAYS THEN OFF 7 DAYS EVERY 28 DAYS CYCLE)
     Route: 048
     Dates: start: 20210114

REACTIONS (2)
  - White blood cell count decreased [Unknown]
  - Fatigue [Unknown]
